FAERS Safety Report 8287456-1 (Version None)
Quarter: 2012Q2

REPORT INFORMATION
  Report Type: 
  Country: None (occurrence: None)
  Receive Date: 20120410
  Receipt Date: 20120410
  Transmission Date: 20120825
  Serious: Yes (Other)
  Sender: FDA-Public Use
  Company Number: None

PATIENT
  Sex: Female
  Weight: 104.3273 kg

DRUGS (3)
  1. BENZTROPINE MESYLATE [Suspect]
     Indication: SCHIZOPHRENIA
     Dosage: 1 MO 2 TIMES DAILY
     Dates: start: 20050901, end: 20120101
  2. LUTIDINE [Concomitant]
  3. MIRTAZAPINE [Concomitant]

REACTIONS (4)
  - WEIGHT INCREASED [None]
  - HAIR GROWTH ABNORMAL [None]
  - HAIR COLOUR CHANGES [None]
  - EYELASH DISCOLOURATION [None]
